FAERS Safety Report 4639770-6 (Version None)
Quarter: 2005Q1

REPORT INFORMATION
  Report Type: 
  Country: None (occurrence: None)
  Receive Date: 20050328
  Receipt Date: 20050113
  Transmission Date: 20050727
  Serious: No
  Sender: FDA-Public Use
  Company Number: USA050188227

PATIENT
  Age: 36 Year
  Sex: Female

DRUGS (1)
  1. STRATTERA [Suspect]
     Dosage: 25 MG

REACTIONS (10)
  - ASTHENIA [None]
  - DIZZINESS [None]
  - FEAR [None]
  - FEELING ABNORMAL [None]
  - HEADACHE [None]
  - INSOMNIA [None]
  - PALPITATIONS [None]
  - PARAESTHESIA [None]
  - PERIPHERAL COLDNESS [None]
  - SOCIAL AVOIDANT BEHAVIOUR [None]
